FAERS Safety Report 5451233-7 (Version None)
Quarter: 2007Q3

REPORT INFORMATION
  Report Type: 
  Country: None (occurrence: None)
  Receive Date: 20070913
  Receipt Date: 20070904
  Transmission Date: 20080115
  Serious: Yes (Other)
  Sender: FDA-Public Use
  Company Number: US-JNJFOC-20070900513

PATIENT
  Sex: Female
  Weight: 66.68 kg

DRUGS (10)
  1. REMICADE [Suspect]
     Indication: CROHN'S DISEASE
     Route: 042
  2. IMURAN [Concomitant]
  3. ASACOL [Concomitant]
  4. SYNTHROID [Concomitant]
  5. VISTARIL [Concomitant]
  6. ESTRADIOL [Concomitant]
  7. REMERON [Concomitant]
  8. ZYPREXA [Concomitant]
  9. GABAPENTIN [Concomitant]
     Indication: ANXIETY DISORDER
  10. FENTANYL TRANSDERMAL SYSTEM [Concomitant]

REACTIONS (3)
  - GAIT DISTURBANCE [None]
  - HALLUCINATION [None]
  - PARANOIA [None]
